FAERS Safety Report 13076775 (Version 1)
Quarter: 2016Q4

REPORT INFORMATION
  Report Type: Spontaneous
  Country: US (occurrence: US)
  Receive Date: 20161230
  Receipt Date: 20161230
  Transmission Date: 20170207
  Serious: Yes (Life-Threatening)
  Sender: FDA-Public Use
  Company Number: None

PATIENT
  Age: 50 Year
  Sex: Female
  Weight: 59.65 kg

DRUGS (16)
  1. CIPROFLOXACIN HCL - CIPROFLOXACIN [Concomitant]
  2. MAG [Concomitant]
  3. HYDROCORTISONE ACETATE [CORTIFOAM] - CORTIFOAM [Concomitant]
  4. HUMIRA [Suspect]
     Active Substance: ADALIMUMAB
     Indication: CROHN^S DISEASE
     Dosage: ?          OTHER FREQUENCY:EVERY OTHER WEEK;?
     Route: 058
     Dates: start: 20140618, end: 20161109
  5. LOPERAMIDE - LOPERAMIDE [Concomitant]
  6. MULTIVITAMIN [Concomitant]
     Active Substance: VITAMINS
  7. VITAMIN B12 [Concomitant]
     Active Substance: CYANOCOBALAMIN
  8. VITAMIN D [Concomitant]
     Active Substance: CHOLECALCIFEROL
  9. MULTIVITAMIN WITH IRON-MINERAL [LIFE-PACK WOMEN^S] LIFE-PACK WOMEN^S [Concomitant]
  10. SPIRONOLACTONE - SPIRONOLACTONE [Concomitant]
  11. IBUPROFEN [ADVIL] - ADVIL [Concomitant]
  12. HUMIRA [Suspect]
     Active Substance: ADALIMUMAB
     Indication: COLITIS
     Dosage: ?          OTHER FREQUENCY:EVERY OTHER WEEK;?
     Route: 058
     Dates: start: 20140618, end: 20161109
  13. TAZARPTENE [TAZORAC] - TAZORAC [Concomitant]
  14. CLINDAMYCIN PHOSPHATE - CLINDAMYCIN [Concomitant]
  15. HYDROCORTISONE - HYDROCORTISONE [Concomitant]
  16. FISH OIL - FISH OIL [Concomitant]

REACTIONS (7)
  - Haemorrhage [None]
  - Oropharyngeal pain [None]
  - Acute monocytic leukaemia [None]
  - Productive cough [None]
  - Gingival swelling [None]
  - Stomatitis [None]
  - Upper respiratory tract infection [None]

NARRATIVE: CASE EVENT DATE: 20161109
